FAERS Safety Report 15940374 (Version 1)
Quarter: 2019Q1

REPORT INFORMATION
  Report Type: Spontaneous
  Country: US (occurrence: US)
  Receive Date: 20190208
  Receipt Date: 20190208
  Transmission Date: 20190417
  Serious: No
  Sender: FDA-Public Use
  Company Number: US-JNJFOC-20190113629

PATIENT
  Age: 12 Month
  Sex: Male
  Weight: 14.97 kg

DRUGS (2)
  1. NYSTATIN W/ZINC OXIDE [Concomitant]
     Indication: RASH
     Route: 065
  2. INFANTS TYLENOL [Suspect]
     Active Substance: ACETAMINOPHEN
     Indication: RASH
     Route: 048

REACTIONS (1)
  - Product use in unapproved indication [Unknown]
